FAERS Safety Report 5186374-5 (Version None)
Quarter: 2006Q4

REPORT INFORMATION
  Report Type: 
  Country: None (occurrence: None)
  Receive Date: 20061220
  Receipt Date: 20061208
  Transmission Date: 20070319
  Serious: Yes (Other)
  Sender: FDA-Public Use
  Company Number: GB-ELI_LILLY_AND_COMPANY-GB200612001695

PATIENT
  Age: 35 Year
  Sex: Female

DRUGS (3)
  1. CYMBALTA [Suspect]
  2. RISPERIDONE [Concomitant]
     Dosage: 5 MG, UNK
     Route: 048
  3. RISPERIDONE [Concomitant]
     Dosage: 4 MG, UNK

REACTIONS (2)
  - AKATHISIA [None]
  - DRUG INTERACTION [None]
